FAERS Safety Report 25192356 (Version 1)
Quarter: 2025Q2

REPORT INFORMATION
  Report Type: Other
  Country: IN (occurrence: IN)
  Receive Date: 20250414
  Receipt Date: 20250414
  Transmission Date: 20250717
  Serious: Yes (unspecified)
  Sender: LYNE LABORATORIES
  Company Number: IN-Lyne Laboratories Inc.-2174805

PATIENT
  Age: 6 Decade
  Sex: Female

DRUGS (3)
  1. DEXAMETHASONE [Suspect]
     Active Substance: DEXAMETHASONE
     Indication: Product used for unknown indication
  2. GENTAMICIN [Suspect]
     Active Substance: GENTAMICIN
  3. MITOMYCIN [Suspect]
     Active Substance: MITOMYCIN

REACTIONS (3)
  - Conjunctival bleb [Recovering/Resolving]
  - Incorrect dose administered [Unknown]
  - Dysaesthesia [Recovering/Resolving]
